FAERS Safety Report 11531038 (Version 5)
Quarter: 2015Q4

REPORT INFORMATION
  Report Type: Report from Study
  Country: TR (occurrence: TR)
  Receive Date: 20150921
  Receipt Date: 20151130
  Transmission Date: 20160304
  Serious: Yes (Hospitalization)
  Sender: FDA-Public Use
  Company Number: TR-009507513-1509TUR010314

PATIENT
  Age: 43 Year
  Sex: Male

DRUGS (9)
  1. OBINUTUZUMAB [Suspect]
     Active Substance: OBINUTUZUMAB
     Indication: CHRONIC LYMPHOCYTIC LEUKAEMIA
     Dosage: 100 MG, ONCE, C1D1
     Route: 042
     Dates: start: 20140724, end: 20140724
  2. OBINUTUZUMAB [Suspect]
     Active Substance: OBINUTUZUMAB
     Dosage: 1000 MG, ONCE MONTHLY ON DAY 1 EACH CYCLE,FROM C2D1
     Route: 042
     Dates: start: 20140821, end: 20141211
  3. NOXAFIL [Suspect]
     Active Substance: POSACONAZOLE
     Indication: PNEUMONIA
     Dosage: 800 MG, QD (1 IN 1 D)
     Route: 048
     Dates: start: 20150624, end: 20150901
  4. OBINUTUZUMAB [Suspect]
     Active Substance: OBINUTUZUMAB
     Dosage: 900 MG, ONCE, C1D2
     Route: 042
     Dates: start: 20140725, end: 20140725
  5. OBINUTUZUMAB [Suspect]
     Active Substance: OBINUTUZUMAB
     Dosage: 1000 MG, ONCE, FROM C1D8
     Route: 042
     Dates: start: 20140731, end: 20140831
  6. BENDAMUSTINE [Suspect]
     Active Substance: BENDAMUSTINE
     Indication: CHRONIC LYMPHOCYTIC LEUKAEMIA
     Dosage: 70 MG/M2 (130 MG), ON DAYS 1 AND 2 EACH CYCLE (TWICE MONTHLY)
     Route: 042
     Dates: start: 20140724, end: 20141212
  7. OBINUTUZUMAB [Suspect]
     Active Substance: OBINUTUZUMAB
     Dosage: 1000 MG, ONCE, C1D15
     Route: 042
     Dates: start: 20140807, end: 20140807
  8. UROVIST [Concomitant]
     Dosage: UNK
  9. CILAPEM [Concomitant]
     Dosage: UNK

REACTIONS (1)
  - Hepatitis B [Recovered/Resolved]

NARRATIVE: CASE EVENT DATE: 20150901
